FAERS Safety Report 11880731 (Version 2)
Quarter: 2016Q1

REPORT INFORMATION
  Report Type: Spontaneous
  Country: US (occurrence: US)
  Receive Date: 20151230
  Receipt Date: 20160225
  Transmission Date: 20160526
  Serious: No
  Sender: FDA-Public Use
  Company Number: US-009507513-1512USA012660

PATIENT
  Age: 22 Year
  Sex: Female
  Weight: 58.96 kg

DRUGS (1)
  1. NEXPLANON [Suspect]
     Active Substance: ETONOGESTREL
     Indication: CONTRACEPTION
     Dosage: 1 DF, UNK, EVERY 3 YEARS, AT THE RIGHT ARM
     Route: 059
     Dates: start: 20130214

REACTIONS (6)
  - Back pain [Unknown]
  - Migraine [Unknown]
  - Mood swings [Unknown]
  - Depression [Unknown]
  - Expired product administered [Unknown]
  - Abdominal pain upper [Unknown]

NARRATIVE: CASE EVENT DATE: 201308
